FAERS Safety Report 4352012-4 (Version None)
Quarter: 2004Q2

REPORT INFORMATION
  Report Type: 
  Country: None (occurrence: None)
  Receive Date: 20040428
  Receipt Date: 20030916
  Transmission Date: 20050107
  Serious: Yes (Hospitalization)
  Sender: FDA-Public Use
  Company Number: US-SHR-03-014852

PATIENT
  Age: 56 Year
  Sex: Male
  Weight: 101.6 kg

DRUGS (1)
  1. LEUKINE [Suspect]
     Indication: MALIGNANT MELANOMA
     Dosage: 250 UG CYCLES Q14DAYS, SUBCUTANEOUS
     Route: 058
     Dates: start: 20021125

REACTIONS (1)
  - CHEST PAIN [None]
